FAERS Safety Report 4639921-3 (Version None)
Quarter: 2005Q2

REPORT INFORMATION
  Report Type: 
  Country: None (occurrence: None)
  Receive Date: 20050418
  Receipt Date: 20050407
  Transmission Date: 20051028
  Serious: Yes (Hospitalization)
  Sender: FDA-Public Use
  Company Number: A-CH2005-09407

PATIENT
  Age: 47 Year
  Sex: Female

DRUGS (3)
  1. TRACLEER [Suspect]
     Indication: PULMONARY HYPERTENSION
     Dosage: ORAL
     Route: 048
     Dates: start: 20031030
  2. CYCLOPHOSPHAMIDE [Concomitant]
  3. SOLU-MEDROL [Concomitant]

REACTIONS (2)
  - NEPHROTIC SYNDROME [None]
  - RENAL VASCULITIS [None]
